FAERS Safety Report 15833709 (Version 1)
Quarter: 2019Q1

REPORT INFORMATION
  Report Type: Spontaneous
  Country: IT (occurrence: IT)
  Receive Date: 20190116
  Receipt Date: 20190116
  Transmission Date: 20190417
  Serious: Yes (Hospitalization, Other)
  Sender: FDA-Public Use
  Company Number: IT-MYLANLABS-2018M1094073

PATIENT
  Age: 69 Year
  Sex: Female

DRUGS (1)
  1. WARFARIN [Suspect]
     Active Substance: WARFARIN
     Indication: ANTICOAGULANT THERAPY
     Dosage: UNK
     Route: 065

REACTIONS (5)
  - Pain [Recovering/Resolving]
  - Ulcer [Recovering/Resolving]
  - Necrosis [Recovering/Resolving]
  - Calciphylaxis [Recovered/Resolved]
  - Steatorrhoea [Recovering/Resolving]
